FAERS Safety Report 5115240-6 (Version None)
Quarter: 2006Q3

REPORT INFORMATION
  Report Type: 
  Country: None (occurrence: None)
  Receive Date: 20060921
  Receipt Date: 20060905
  Transmission Date: 20061208
  Serious: Yes (Other)
  Sender: FDA-Public Use
  Company Number: L06-DEN-03766-01

PATIENT
  Age: 64 Year
  Sex: Female

DRUGS (1)
  1. CARBAMAZEPINE [Suspect]
     Dosage: 800 MG DAILY

REACTIONS (1)
  - ATRIOVENTRICULAR BLOCK THIRD DEGREE [None]
